FAERS Safety Report 12798195 (Version 1)
Quarter: 2016Q3

REPORT INFORMATION
  Report Type: Spontaneous
  Country: US (occurrence: US)
  Receive Date: 20160930
  Receipt Date: 20160930
  Transmission Date: 20161109
  Serious: No
  Sender: FDA-Public Use
  Company Number: PHEH2016US024675

PATIENT
  Sex: Male

DRUGS (1)
  1. GLEEVEC [Suspect]
     Active Substance: IMATINIB MESYLATE
     Indication: PRODUCT USED FOR UNKNOWN INDICATION
     Route: 065

REACTIONS (8)
  - Blood urine present [Unknown]
  - Vomiting [Unknown]
  - Peripheral swelling [Unknown]
  - Dyspepsia [Unknown]
  - Cough [Unknown]
  - Asthenia [Unknown]
  - Amnesia [Unknown]
  - Alopecia [Unknown]
